FAERS Safety Report 9800786 (Version 1)
Quarter: 2014Q1

REPORT INFORMATION
  Report Type: Spontaneous
  Country: US (occurrence: US)
  Receive Date: 20140107
  Receipt Date: 20140107
  Transmission Date: 20141002
  Serious: No
  Sender: FDA-Public Use
  Company Number: US-PFIZER INC-2014001372

PATIENT
  Age: 55 Year
  Sex: Female
  Weight: 68.03 kg

DRUGS (2)
  1. SINEQUAN [Suspect]
     Indication: DEPRESSION
     Dosage: UNK, 1X/DAY
  2. SINEQUAN [Suspect]
     Dosage: UNK

REACTIONS (4)
  - Pruritus [Recovered/Resolved]
  - Vomiting [Recovered/Resolved]
  - Feeling abnormal [Recovered/Resolved]
  - Disturbance in attention [Recovered/Resolved]
